FAERS Safety Report 9038013 (Version 1)
Quarter: 2013Q1

REPORT INFORMATION
  Report Type: Report from Study
  Country: US (occurrence: US)
  Receive Date: 20130129
  Receipt Date: 20130129
  Transmission Date: 20140127
  Serious: No
  Sender: FDA-Public Use
  Company Number: US-ABBOTT-12P-163-0925199-00

PATIENT
  Age: 61 Year
  Sex: Female

DRUGS (6)
  1. HUMIRA 40 MG/0.8 ML PEN [Suspect]
     Indication: RHEUMATOID ARTHRITIS
     Dates: start: 20120410
  2. FORTEO [Concomitant]
     Indication: OSTEOARTHRITIS
     Dosage: 1 INJECTION DAILY
     Route: 058
  3. MELOXICAM [Concomitant]
     Indication: ARTHRALGIA
  4. ULTRAM [Concomitant]
     Indication: ARTHRALGIA
     Dosage: UP TO 3 TABS DAILY, AS REQUIRED
  5. CALCIUM [Concomitant]
     Indication: PRODUCT USED FOR UNKNOWN INDICATION
  6. VITAMIN D [Concomitant]
     Indication: PRODUCT USED FOR UNKNOWN INDICATION
     Dosage: 1 TAB DAILY

REACTIONS (2)
  - Abdominal discomfort [Not Recovered/Not Resolved]
  - Palpitations [Not Recovered/Not Resolved]
